FAERS Safety Report 18441002 (Version 3)
Quarter: 2020Q4

REPORT INFORMATION
  Report Type: Spontaneous
  Country: US (occurrence: US)
  Receive Date: 20201029
  Receipt Date: 20201124
  Transmission Date: 20210114
  Serious: Yes (Other)
  Sender: FDA-Public Use
  Company Number: US-PFIZER INC-2020417279

PATIENT
  Age: 70 Year
  Sex: Female
  Weight: 56.7 kg

DRUGS (1)
  1. CHANTIX [Suspect]
     Active Substance: VARENICLINE TARTRATE
     Indication: SMOKING CESSATION THERAPY
     Dosage: 0.5 DF, 2X/DAY, 1/2 IN THE MORNING AND 1/2 IN THE AFTERNOON BY MOUTH
     Route: 048

REACTIONS (3)
  - Abdominal discomfort [Unknown]
  - Confusional state [Unknown]
  - Impaired gastric emptying [Unknown]
